FAERS Safety Report 9640324 (Version 1)
Quarter: 2013Q4

REPORT INFORMATION
  Report Type: Spontaneous
  Country: US (occurrence: None)
  Receive Date: 20131022
  Receipt Date: 20131022
  Transmission Date: 20140711
  Serious: Yes (Hospitalization)
  Sender: FDA-Public Use
  Company Number: None

PATIENT
  Age: 45 Year
  Sex: Male
  Weight: 97.52 kg

DRUGS (1)
  1. CRESTOR [Suspect]
     Indication: BLOOD CHOLESTEROL INCREASED
     Dosage: 1/2 TABLET ONCE DAILY TAKEN BY MOUTH
     Route: 048

REACTIONS (8)
  - Hyperhidrosis [None]
  - Vomiting [None]
  - Dizziness [None]
  - Dizziness [None]
  - Asthenia [None]
  - Presyncope [None]
  - Abasia [None]
  - Dysstasia [None]
